FAERS Safety Report 9271149 (Version 3)
Quarter: 2014Q2

REPORT INFORMATION
  Report Type: Report from Study
  Country: MX (occurrence: MX)
  Receive Date: 20130506
  Receipt Date: 20140603
  Transmission Date: 20141212
  Serious: Yes (Death, Hospitalization)
  Sender: FDA-Public Use
  Company Number: PHHY2013MX043833

PATIENT
  Age: 60 Year
  Sex: Male

DRUGS (1)
  1. DIOVAN [Suspect]
     Indication: HYPERTENSION
     Dosage: 1 DF (160MG), DAILY
     Route: 048
     Dates: start: 2011

REACTIONS (5)
  - Cerebral haemorrhage [Fatal]
  - Hypertension [Fatal]
  - Pulmonary oedema [Fatal]
  - Renal failure [Fatal]
  - Blood pressure increased [Unknown]
